FAERS Safety Report 7018774-2 (Version None)
Quarter: 2010Q3

REPORT INFORMATION
  Report Type: 
  Country: None (occurrence: None)
  Receive Date: 20100928
  Receipt Date: 20100920
  Transmission Date: 20110219
  Serious: Yes (Death)
  Sender: FDA-Public Use
  Company Number: AU-PURDUE-USA-2010-0047194

PATIENT
  Age: 37 Year
  Sex: Male

DRUGS (2)
  1. OXYCODONE HCL [Suspect]
     Indication: SPINAL CORD INJURY
     Dosage: UNK
     Dates: start: 20100901, end: 20100911
  2. VALIUM [Concomitant]
     Dosage: UNK

REACTIONS (2)
  - DEATH [None]
  - OVERDOSE [None]
